FAERS Safety Report 12647917 (Version 3)
Quarter: 2016Q3

REPORT INFORMATION
  Report Type: Spontaneous
  Country: US (occurrence: US)
  Receive Date: 20160812
  Receipt Date: 20160902
  Transmission Date: 20161109
  Serious: Yes (Other)
  Sender: FDA-Public Use
  Company Number: US-PFIZER INC-2016382147

PATIENT
  Age: 76 Year
  Sex: Female

DRUGS (1)
  1. CELEBREX [Suspect]
     Active Substance: CELECOXIB
     Dosage: 200 MG, 1X/DAY (DAILY)
     Route: 048

REACTIONS (3)
  - Femur fracture [Unknown]
  - Osteoarthritis [Unknown]
  - Spinal osteoarthritis [Unknown]
